FAERS Safety Report 19821497 (Version 1)
Quarter: 2021Q3

REPORT INFORMATION
  Report Type: Spontaneous
  Country: US (occurrence: US)
  Receive Date: 20210909
  Receipt Date: 20210909
  Transmission Date: 20211014
  Serious: Yes (Other)
  Sender: FDA-Public Use
  Company Number: None

PATIENT
  Age: 71 Year
  Sex: Female
  Weight: 63.5 kg

DRUGS (7)
  1. CITRACAL + D3 MAXIMUM (CALCIUM) [Concomitant]
  2. AMLODIPINE [Suspect]
     Active Substance: AMLODIPINE BESYLATE
     Indication: HYPERTENSION
     Dosage: QUANTITY:1 DF DOSAGE FORM;?
     Route: 048
     Dates: start: 20210622
  3. DOXYCYCLINE. [Concomitant]
     Active Substance: DOXYCYCLINE
  4. CENTRUM SILVER VITAMINS FOR WOMEN 50+ [Concomitant]
  5. KETOCONAZOLE SHAMPOO [Concomitant]
     Active Substance: KETOCONAZOLE
  6. METRONIDAZOLE. [Concomitant]
     Active Substance: METRONIDAZOLE
  7. BLOOD PRESSURE MACHINE [Concomitant]

REACTIONS (1)
  - Constipation [None]

NARRATIVE: CASE EVENT DATE: 20210713
